FAERS Safety Report 20517826 (Version 1)
Quarter: 2022Q1

REPORT INFORMATION
  Report Type: Spontaneous
  Country: US (occurrence: None)
  Receive Date: 20220224
  Receipt Date: 20220224
  Transmission Date: 20220423
  Serious: Yes (Hospitalization)
  Sender: FDA-Public Use
  Company Number: None

PATIENT
  Age: 66 Year
  Sex: Male
  Weight: 96.9 kg

DRUGS (1)
  1. YESCARTA [Suspect]
     Active Substance: AXICABTAGENE CILOLEUCEL
     Indication: Diffuse large B-cell lymphoma
     Dates: start: 20211122, end: 20211122

REACTIONS (5)
  - Cytokine release syndrome [None]
  - Diarrhoea [None]
  - Clostridium difficile infection [None]
  - Platelet count decreased [None]
  - Blood fibrinogen decreased [None]

NARRATIVE: CASE EVENT DATE: 20211123
